FAERS Safety Report 8287539-6 (Version None)
Quarter: 2012Q2

REPORT INFORMATION
  Report Type: 
  Country: None (occurrence: None)
  Receive Date: 20120416
  Receipt Date: 20120322
  Transmission Date: 20120825
  Serious: Yes (Other)
  Sender: FDA-Public Use
  Company Number: NL-CELGENEUS-114-50794-12032549

PATIENT
  Sex: Male
  Weight: 77 kg

DRUGS (1)
  1. VIDAZA [Suspect]
     Route: 065
     Dates: start: 20111121, end: 20120120

REACTIONS (2)
  - ERYTHEMA [None]
  - EXTRAVASATION [None]
